FAERS Safety Report 19023354 (Version 1)
Quarter: 2021Q1

REPORT INFORMATION
  Report Type: Spontaneous
  Country: CZ (occurrence: CZ)
  Receive Date: 20210317
  Receipt Date: 20210317
  Transmission Date: 20210420
  Serious: Yes (Other)
  Sender: FDA-Public Use
  Company Number: CZ-GILEAD-2021-0521449

PATIENT
  Age: 82 Year
  Sex: Female
  Weight: 112 kg

DRUGS (1)
  1. VEKLURY [Suspect]
     Active Substance: REMDESIVIR
     Indication: COVID-19 PNEUMONIA
     Dosage: 100 MG
     Route: 042
     Dates: start: 20210131, end: 20210201

REACTIONS (2)
  - Hypertransaminasaemia [Recovering/Resolving]
  - Liver disorder [Recovering/Resolving]

NARRATIVE: CASE EVENT DATE: 20210201
